FAERS Safety Report 8234768 (Version 9)
Quarter: 2012Q4

REPORT INFORMATION
  Report Type: Spontaneous
  Country: US (occurrence: None)
  Receive Date: 20111101
  Receipt Date: 20121009
  Transmission Date: 20130627
  Serious: Yes (Other)
  Sender: FDA-Public Use
  Company Number: AUR-APL-2011-05598

PATIENT
  Age: 80 Year
  Sex: Female

DRUGS (8)
  1. CIPROFLOXACIN [Suspect]
     Indication: URINARY TRACT INFECTION
     Dosage: 500 MG (250 MG, 2 IN 1 D), ORAL
     Route: 048
     Dates: start: 20111017
  2. LEVEMIR [Concomitant]
  3. METOPROLOL (METOPROLOL) [Concomitant]
  4. ENALAPRIL (ENALAPRIL) [Concomitant]
  5. AMLODIPINE (AMLODIPINE) [Concomitant]
  6. ZANTAC [Concomitant]
  7. PRAVASTATIN (PRAVASTATIN) [Concomitant]
  8. PREVACID [Concomitant]

REACTIONS (8)
  - Herpes zoster [None]
  - Blister [None]
  - Sialoadenitis [None]
  - Product quality issue [None]
  - Trismus [None]
  - Incorrect storage of drug [None]
  - Herpes zoster [None]
  - Oral infection [None]
